FAERS Safety Report 8449746-9 (Version None)
Quarter: 2012Q2

REPORT INFORMATION
  Report Type: 
  Country: None (occurrence: None)
  Receive Date: 20120613
  Receipt Date: 20120613
  Transmission Date: 20120825
  Serious: Yes (Hospitalization)
  Sender: FDA-Public Use
  Company Number: None

PATIENT
  Age: 84 Year
  Sex: Male
  Weight: 99.3 kg

DRUGS (2)
  1. CEFTRIAXONE [Suspect]
     Indication: PNEUMONIA
     Dosage: 1 GM EVERY DAY IV
     Route: 042
     Dates: start: 20120401, end: 20120405
  2. PIPERACILLIN AND TAZOBACTAM [Suspect]
     Indication: PNEUMONIA
     Dosage: 2.25 MG QID IV
     Route: 042
     Dates: start: 20120405, end: 20120410

REACTIONS (5)
  - ORAL DISORDER [None]
  - MOUTH ULCERATION [None]
  - WHITE BLOOD CELL COUNT INCREASED [None]
  - CELLULITIS [None]
  - RASH MORBILLIFORM [None]
